FAERS Safety Report 9949325 (Version 6)
Quarter: 2015Q1

REPORT INFORMATION
  Report Type: Spontaneous
  Country: US (occurrence: None)
  Receive Date: 20140122
  Receipt Date: 20150203
  Transmission Date: 20150721
  Serious: Yes (Other)
  Sender: FDA-Public Use
  Company Number: AEGR000238

PATIENT
  Age: 66 Year
  Sex: Female
  Weight: 67.1 kg

DRUGS (17)
  1. JUXTAPID [Suspect]
     Active Substance: LOMITAPIDE MESYLATE
     Indication: TYPE IIA HYPERLIPIDAEMIA
     Route: 048
     Dates: start: 201311, end: 201401
  2. ACYCLOVIR (ACICLOVIR) [Concomitant]
  3. LOSARTAN (LOSARTAN POTASSIUM) [Concomitant]
  4. VITAMIN E (TOCOPHERYL ACID SUCCINATE) [Concomitant]
  5. TRAZODONE HCL (TRAZODONE HYDROCHLORIDE) [Concomitant]
  6. VITAMIN D (COLECALCIFEROL) [Concomitant]
  7. LORATADINE (LORATADINE) [Concomitant]
  8. SYNTHROID [Concomitant]
     Active Substance: LEVOTHYROXINE SODIUM
  9. ANTIBIOTICS [Concomitant]
     Active Substance: UNSPECIFIED INGREDIENT
  10. COMBIVENT (IPRATROPIUM BROMIDE, SALBUTAMOL SULFATE) [Concomitant]
  11. POTASSIUM (POTASSIUM BICARBONATE, POTASSIUM CHLORIDE) [Concomitant]
  12. HYDROCHLOROTHIAZIDE (HYDROCHLOROTHIAZIDE) [Concomitant]
     Active Substance: HYDROCHLOROTHIAZIDE
  13. FISH OIL (FISH OIL) [Concomitant]
     Active Substance: FISH OIL
  14. AMITRIPTYLINE (AMITRIPTYLINE) [Concomitant]
     Active Substance: AMITRIPTYLINE
  15. TRAMADOL [Concomitant]
     Active Substance: TRAMADOL
  16. ADVAIR DISKUS [Concomitant]
     Active Substance: FLUTICASONE PROPIONATE\SALMETEROL XINAFOATE
  17. ZYRTEC [Concomitant]
     Active Substance: CETIRIZINE HYDROCHLORIDE

REACTIONS (15)
  - Blood urine present [None]
  - Off label use [None]
  - Oropharyngeal pain [None]
  - Haematochezia [None]
  - Herpes zoster [None]
  - Nasal congestion [None]
  - Platelet count decreased [None]
  - Renal pain [None]
  - Kidney infection [None]
  - Faeces discoloured [None]
  - Constipation [None]
  - Urethritis noninfective [None]
  - Back pain [None]
  - Blood pressure increased [None]
  - Headache [None]

NARRATIVE: CASE EVENT DATE: 2013
